FAERS Safety Report 9421850 (Version 1)
Quarter: 2013Q3

REPORT INFORMATION
  Report Type: Spontaneous
  Country: CH (occurrence: CH)
  Receive Date: 20130726
  Receipt Date: 20130726
  Transmission Date: 20140515
  Serious: Yes (Other)
  Sender: FDA-Public Use
  Company Number: CH-BAYER-2013-065275

PATIENT
  Age: 50 Year
  Sex: Female
  Weight: 70 kg

DRUGS (1)
  1. MIRENA [Suspect]
     Dosage: 20 MCG/24HR, CONT
     Route: 015
     Dates: start: 20130403, end: 20130507

REACTIONS (5)
  - Multiple allergies [Recovered/Resolved]
  - Pruritus generalised [Recovered/Resolved]
  - Rash generalised [Recovered/Resolved]
  - Unevaluable event [Recovered/Resolved]
  - Tachycardia [Recovered/Resolved]
